FAERS Safety Report 16373672 (Version 2)
Quarter: 2019Q2

REPORT INFORMATION
  Report Type: Report from Study
  Country: US (occurrence: US)
  Receive Date: 20190530
  Receipt Date: 20190606
  Transmission Date: 20190711
  Serious: No
  Sender: FDA-Public Use
  Company Number: US-SA-2019SA145359

PATIENT
  Age: 15 Month
  Sex: Female

DRUGS (1)
  1. LARONIDASE [Suspect]
     Active Substance: LARONIDASE
     Indication: MUCOPOLYSACCHARIDOSIS I
     Dosage: 5.8 MG PER INFUSION; FREQUENCY: Q1
     Route: 041
     Dates: start: 20190419

REACTIONS (1)
  - Inappropriate schedule of product administration [Unknown]
